FAERS Safety Report 11382604 (Version 1)
Quarter: 2015Q3

REPORT INFORMATION
  Report Type: Spontaneous
  Country: US (occurrence: US)
  Receive Date: 20150811
  Receipt Date: 20150811
  Transmission Date: 20151125
  Serious: No
  Sender: FDA-Public Use
  Company Number: US-ELI_LILLY_AND_COMPANY-US201007006364

PATIENT
  Sex: Male

DRUGS (2)
  1. ADCIRCA [Suspect]
     Active Substance: TADALAFIL
     Indication: PULMONARY HYPERTENSION
     Dosage: UNK, UNK
     Dates: start: 20100717
  2. TRACLEER [Concomitant]
     Active Substance: BOSENTAN

REACTIONS (2)
  - Eye swelling [Unknown]
  - Joint swelling [Not Recovered/Not Resolved]
